FAERS Safety Report 23994806 (Version 1)
Quarter: 2024Q2

REPORT INFORMATION
  Report Type: Spontaneous
  Country: DK (occurrence: DK)
  Receive Date: 20240620
  Receipt Date: 20240620
  Transmission Date: 20240715
  Serious: Yes (Hospitalization)
  Sender: FDA-Public Use
  Company Number: None

PATIENT
  Age: 25 Year
  Sex: Male
  Weight: 87 kg

DRUGS (2)
  1. DEPO-MEDROL [Suspect]
     Active Substance: METHYLPREDNISOLONE ACETATE
     Indication: Musculoskeletal discomfort
     Dates: start: 20240516, end: 20240516
  2. LIDOCAINE HYDROCHLORIDE ANHYDROUS [Concomitant]
     Active Substance: LIDOCAINE HYDROCHLORIDE ANHYDROUS
     Indication: Musculoskeletal discomfort
     Dates: start: 20240516, end: 20240516

REACTIONS (10)
  - Rash [Recovered/Resolved]
  - Throat irritation [Recovering/Resolving]
  - Hypersensitivity [Recovering/Resolving]
  - Pruritus [Recovering/Resolving]
  - Periorbital swelling [Recovering/Resolving]
  - Swelling face [Recovering/Resolving]
  - Erythema [Recovering/Resolving]
  - Dizziness [Unknown]
  - Skin swelling [Recovering/Resolving]
  - Ear swelling [Recovering/Resolving]

NARRATIVE: CASE EVENT DATE: 20240516
